FAERS Safety Report 8017930-4 (Version None)
Quarter: 2012Q1

REPORT INFORMATION
  Report Type: 
  Country: None (occurrence: None)
  Receive Date: 20120103
  Receipt Date: 20111222
  Transmission Date: 20120608
  Serious: Yes (Other)
  Sender: FDA-Public Use
  Company Number: US-JNJFOC-20111209488

PATIENT
  Sex: Male
  Weight: 68.04 kg

DRUGS (11)
  1. ZYTIGA [Suspect]
     Route: 048
     Dates: start: 20110701, end: 20111219
  2. VITAMIN B-12 [Concomitant]
     Route: 048
  3. ZYTIGA [Suspect]
     Indication: PROSTATE CANCER
     Route: 048
     Dates: start: 20111220, end: 20111220
  4. PRILOSEC [Concomitant]
     Route: 048
  5. PREDNISONE TAB [Concomitant]
     Route: 048
  6. FERROUS SULFATE TAB [Concomitant]
     Route: 048
  7. ZYTIGA [Suspect]
     Route: 048
     Dates: start: 20110601
  8. LEVOXYL [Concomitant]
     Route: 048
  9. CALCIUM ACETATE [Concomitant]
     Route: 048
  10. SIMVASTATIN [Concomitant]
     Route: 048
  11. ENALAPRIL MALEATE [Concomitant]
     Route: 048

REACTIONS (3)
  - CONFUSIONAL STATE [None]
  - AMNESIA [None]
  - INAPPROPRIATE SCHEDULE OF DRUG ADMINISTRATION [None]
